FAERS Safety Report 17258391 (Version 5)
Quarter: 2020Q2

REPORT INFORMATION
  Report Type: Report from Study
  Country: None (occurrence: PL)
  Receive Date: 20200110
  Receipt Date: 20200612
  Transmission Date: 20200713
  Serious: Yes (Hospitalization, Other)
  Sender: FDA-Public Use
  Company Number: PL-ABBVIE-20P-129-3217162-00

PATIENT
  Age: 57 Year
  Sex: Male

DRUGS (13)
  1. METHOTREXATE. [Concomitant]
     Active Substance: METHOTREXATE
     Route: 058
     Dates: start: 2015, end: 201808
  2. AMLOPIN [Concomitant]
     Indication: HYPERTENSION
     Route: 048
     Dates: start: 2016
  3. VITRUM D3 FORTE [Concomitant]
     Indication: VITAMIN SUPPLEMENTATION
     Route: 048
     Dates: start: 20190323
  4. PLACEBO [Suspect]
     Active Substance: UNSPECIFIED INGREDIENT
     Indication: PSORIATIC ARTHROPATHY
     Route: 065
     Dates: start: 20190426, end: 20191009
  5. METHOTREXATE. [Concomitant]
     Active Substance: METHOTREXATE
     Indication: PSORIATIC ARTHROPATHY
     Route: 058
     Dates: start: 201808
  6. UPADACITINIB [Suspect]
     Active Substance: UPADACITINIB
     Indication: PSORIATIC ARTHROPATHY
     Route: 048
     Dates: start: 20191010, end: 20191225
  7. NITRAZID [Concomitant]
     Indication: LATENT TUBERCULOSIS
     Route: 048
     Dates: start: 20190409
  8. ACIDUM FOLICUM [Concomitant]
     Active Substance: FOLIC ACID
     Indication: TOXICITY TO VARIOUS AGENTS
     Route: 048
     Dates: start: 2018
  9. CALPEROS [Concomitant]
     Indication: PSORIATIC ARTHROPATHY
     Route: 048
     Dates: start: 2017
  10. METYPRED [Concomitant]
     Active Substance: METHYLPREDNISOLONE
     Indication: PSORIATIC ARTHROPATHY
     Route: 048
     Dates: start: 2009
  11. CONTROLOC [Concomitant]
     Active Substance: PANTOPRAZOLE SODIUM
     Indication: GASTRITIS PROPHYLAXIS
     Route: 048
     Dates: start: 2000
  12. DICLODUO [Concomitant]
     Active Substance: DICLOFENAC SODIUM
     Indication: PSORIATIC ARTHROPATHY
     Route: 048
     Dates: start: 2005
  13. CYANOCOBALAMINUM [Concomitant]
     Indication: VITAMIN SUPPLEMENTATION
     Route: 030
     Dates: start: 20190323

REACTIONS (4)
  - Skin necrosis [Recovered/Resolved]
  - Subcutaneous abscess [Recovered/Resolved]
  - Cellulitis [Recovered/Resolved]
  - Fistula [Recovered/Resolved]

NARRATIVE: CASE EVENT DATE: 20191224
